FAERS Safety Report 7732888-0 (Version None)
Quarter: 2011Q3

REPORT INFORMATION
  Report Type: 
  Country: None (occurrence: None)
  Receive Date: 20110901
  Receipt Date: 20110817
  Transmission Date: 20111222
  Serious: Yes (Other)
  Sender: FDA-Public Use
  Company Number: FI-1187679

PATIENT
  Sex: Male

DRUGS (1)
  1. TRAVATAN [Suspect]
     Indication: INTRAOCULAR PRESSURE INCREASED
     Dosage: ONCE A DAY OPHTHALMIC
     Route: 047
     Dates: start: 20110331, end: 20110512

REACTIONS (2)
  - CYSTOID MACULAR OEDEMA [None]
  - VISUAL ACUITY REDUCED [None]
